FAERS Safety Report 16417326 (Version 1)
Quarter: 2019Q2

REPORT INFORMATION
  Report Type: Spontaneous
  Country: GB (occurrence: GB)
  Receive Date: 20190611
  Receipt Date: 20190611
  Transmission Date: 20190711
  Serious: Yes (Life-Threatening, Hospitalization, Other)
  Sender: FDA-Public Use
  Company Number: PHHY2019GB133841

PATIENT
  Age: 8 Year
  Sex: Male
  Weight: 33.2 kg

DRUGS (2)
  1. LEVETIRACETAM. [Concomitant]
     Active Substance: LEVETIRACETAM
     Indication: PARTIAL SEIZURES
     Dosage: 1600 MG, QD
     Route: 065
     Dates: start: 20190401
  2. CARBAMAZEPINE. [Suspect]
     Active Substance: CARBAMAZEPINE
     Indication: PARTIAL SEIZURES
     Route: 048
     Dates: start: 20190404, end: 20190508

REACTIONS (12)
  - Pruritus [Unknown]
  - Diarrhoea [Not Recovered/Not Resolved]
  - Decreased appetite [Unknown]
  - Pain [Unknown]
  - Vomiting [Unknown]
  - Pyrexia [Unknown]
  - Cough [Unknown]
  - Kawasaki^s disease [Unknown]
  - Lethargy [Unknown]
  - Drug reaction with eosinophilia and systemic symptoms [Not Recovered/Not Resolved]
  - Lip dry [Unknown]
  - Rash [Unknown]

NARRATIVE: CASE EVENT DATE: 20190427
